FAERS Safety Report 8923062 (Version 1)
Quarter: 2012Q4

REPORT INFORMATION
  Report Type: 
  Country: AU (occurrence: AU)
  Receive Date: 20121123
  Receipt Date: 20121123
  Transmission Date: 20130627
  Serious: Yes (Hospitalization)
  Sender: FDA-Public Use
  Company Number: PHHO2012AU016375

PATIENT
  Age: 69 Year
  Sex: Male
  Weight: 74.4 kg

DRUGS (14)
  1. ZOLEDRONIC ACID [Suspect]
     Indication: PROSTATE CANCER
     Dosage: 4 mg monthly
     Route: 042
     Dates: start: 20090907
  2. PREDNISONE [Concomitant]
     Indication: PROSTATE CANCER
     Dosage: 5 mg, BID
     Route: 048
     Dates: start: 20120814
  3. LUCRIN [Concomitant]
     Dosage: UNK
     Dates: start: 20100901
  4. METHADONE [Concomitant]
     Dosage: UNK
     Dates: start: 20110831
  5. FENTANYL [Concomitant]
     Dosage: UNK
     Dates: start: 20110609
  6. BISACODYL [Concomitant]
     Dosage: UNK
     Dates: start: 20110203
  7. PANAMAX [Concomitant]
     Dosage: UNK
     Dates: start: 20110831
  8. PREGABALIN [Concomitant]
     Dosage: UNK
     Dates: start: 20111124
  9. SOMAC [Concomitant]
     Dosage: UNK
     Dates: start: 20090319
  10. CARTIA [Concomitant]
     Dosage: UNK
     Dates: start: 2006
  11. CYMBALTA [Concomitant]
     Dosage: UNK
     Dates: start: 20101124
  12. COSUDEX [Concomitant]
     Indication: PROSTATE CANCER
     Dosage: UNK
     Dates: start: 20101018
  13. DOCETAXEL [Concomitant]
     Indication: PROSTATE CANCER
     Dosage: UNK
     Dates: start: 20110110, end: 20110717
  14. PREDNISOLONE [Concomitant]
     Indication: PROSTATE CANCER
     Dosage: UNK
     Dates: start: 20111006, end: 20120612

REACTIONS (2)
  - Osteonecrosis of jaw [Recovered/Resolved]
  - Bone pain [Recovered/Resolved]
